FAERS Safety Report 13543113 (Version 1)
Quarter: 2017Q2

REPORT INFORMATION
  Report Type: Spontaneous
  Country: US (occurrence: US)
  Receive Date: 20170512
  Receipt Date: 20170512
  Transmission Date: 20170830
  Serious: Yes (Death)
  Sender: FDA-Public Use
  Company Number: None

PATIENT
  Age: 90 Year
  Sex: Female

DRUGS (7)
  1. LISINOPRIL. [Concomitant]
     Active Substance: LISINOPRIL
  2. TYLENOL [Concomitant]
     Active Substance: ACETAMINOPHEN
  3. PROLIA [Concomitant]
     Active Substance: DENOSUMAB
  4. TRICOR [Concomitant]
     Active Substance: FENOFIBRATE
  5. PROCRIT [Suspect]
     Active Substance: ERYTHROPOIETIN
     Indication: ANAEMIA OF MALIGNANT DISEASE
     Dosage: ?          OTHER FREQUENCY:EVERY 2 WEEKS;?
     Route: 058
  6. PROCRIT [Suspect]
     Active Substance: ERYTHROPOIETIN
     Indication: NEPHROPATHY
     Dosage: ?          OTHER FREQUENCY:EVERY 2 WEEKS;?
     Route: 058
  7. ALPRAZOLAM. [Concomitant]
     Active Substance: ALPRAZOLAM

REACTIONS (1)
  - Death [None]

NARRATIVE: CASE EVENT DATE: 20170505
